FAERS Safety Report 22704289 (Version 2)
Quarter: 2023Q4

REPORT INFORMATION
  Report Type: Spontaneous
  Country: PL (occurrence: None)
  Receive Date: 20230714
  Receipt Date: 20231222
  Transmission Date: 20240110
  Serious: Yes (Death, Hospitalization, Other)
  Sender: FDA-Public Use
  Company Number: PL-ROCHE-3386329

PATIENT
  Age: 55 Year
  Sex: Female
  Weight: 74 kg

DRUGS (3)
  1. ROZLYTREK [Suspect]
     Active Substance: ENTRECTINIB
     Indication: Non-small cell lung cancer
     Route: 065
     Dates: start: 20230314, end: 20230812
  2. ROZLYTREK [Suspect]
     Active Substance: ENTRECTINIB
     Indication: Lung adenocarcinoma stage IV
  3. XARELTO [Concomitant]
     Active Substance: RIVAROXABAN
     Route: 048
     Dates: start: 20230120, end: 20230812

REACTIONS (19)
  - Cardiac failure congestive [Fatal]
  - Sepsis [Unknown]
  - Myocarditis [Fatal]
  - Endocarditis [Fatal]
  - Colour blindness [Recovering/Resolving]
  - Hypotension [Recovering/Resolving]
  - Malignant neoplasm progression [Unknown]
  - Tachypnoea [Unknown]
  - Pyrexia [Recovered/Resolved]
  - General physical health deterioration [Unknown]
  - Joint swelling [Unknown]
  - Acute respiratory failure [Unknown]
  - Pericarditis [Unknown]
  - Left ventricular enlargement [Unknown]
  - Cardiac failure [Fatal]
  - Condition aggravated [Fatal]
  - Hypokinesia [Unknown]
  - Depressed mood [Unknown]
  - Bacteraemia [Unknown]
